FAERS Safety Report 16842874 (Version 1)
Quarter: 2019Q3

REPORT INFORMATION
  Report Type: Report from Study
  Country: IT (occurrence: IT)
  Receive Date: 20190924
  Receipt Date: 20190924
  Transmission Date: 20191005
  Serious: Yes (Hospitalization)
  Sender: FDA-Public Use
  Company Number: IT-TEVA-2019-IT-1111662

PATIENT
  Age: 77 Year
  Sex: Male

DRUGS (4)
  1. TICLOPIDINE [Suspect]
     Active Substance: TICLOPIDINE
     Indication: ISCHAEMIC CARDIOMYOPATHY
     Dates: start: 20190101
  2. VOLTAREN 75 MG/3 ML SOLUZIONE INIETTABILE PER USO INTRAMUSCOLARE [Suspect]
     Active Substance: DICLOFENAC
     Route: 030
  3. MUSCORIL [Concomitant]
     Active Substance: THIOCOLCHICOSIDE
     Indication: MUSCLE CONTRACTURE
     Route: 030
  4. TORA-DOL 20 MG/ML GOCCE ORALI, SOLUZIONE [Suspect]
     Active Substance: KETOROLAC TROMETHAMINE
     Indication: PAIN
     Route: 048

REACTIONS (2)
  - Haematochezia [Recovering/Resolving]
  - Drug interaction [Recovering/Resolving]

NARRATIVE: CASE EVENT DATE: 20190827
